FAERS Safety Report 11399401 (Version 2)
Quarter: 2015Q3

REPORT INFORMATION
  Report Type: Spontaneous
  Country: JP (occurrence: JP)
  Receive Date: 20150820
  Receipt Date: 20150916
  Transmission Date: 20151125
  Serious: Yes (Life-Threatening, Other)
  Sender: FDA-Public Use
  Company Number: JP-PFIZER INC-2015210577

PATIENT
  Age: 82 Year
  Sex: Female
  Weight: 26 kg

DRUGS (10)
  1. CRAVIT [Concomitant]
     Active Substance: LEVOFLOXACIN
     Dosage: 500 MG, 1X/DAY
     Route: 048
     Dates: start: 20141211, end: 20141222
  2. TAKEPRON [Concomitant]
     Active Substance: LANSOPRAZOLE
     Dosage: 15 MG, 1X/DAY
     Route: 048
     Dates: end: 20141227
  3. ADETPHOS [Concomitant]
     Active Substance: ADENOSINE TRIPHOSPHATE
     Dosage: 40 MG, 4X/DAY
     Route: 048
  4. EBRANTIL /00631801/ [Concomitant]
     Active Substance: URAPIDIL
     Dosage: 15 MG, 2X/DAY
     Route: 048
  5. TRAVELMIN /00517301/ [Concomitant]
     Dosage: 1 DF, 3X/DAY
     Route: 048
  6. BESACOLIN [Concomitant]
     Active Substance: BETHANECHOL CHLORIDE
     Dosage: 25 MG, 2X/DAY
     Route: 048
  7. MUCOSTA [Concomitant]
     Active Substance: REBAMIPIDE
     Indication: ARTHRALGIA
     Dosage: 100 MG, 2X/DAY
     Route: 048
     Dates: start: 20141210, end: 20141227
  8. LYRICA [Suspect]
     Active Substance: PREGABALIN
     Indication: ARTHRALGIA
     Dosage: 25 MG, 3X/DAY
     Route: 048
     Dates: start: 20141210, end: 20141227
  9. CELECOX [Concomitant]
     Active Substance: CELECOXIB
     Indication: ARTHRALGIA
     Dosage: 100 MG, 2X/DAY
     Route: 048
     Dates: start: 20141210, end: 20141227
  10. LIPITOR [Concomitant]
     Active Substance: ATORVASTATIN CALCIUM
     Dosage: 5 MG, 1X/DAY
     Route: 048
     Dates: end: 20141227

REACTIONS (30)
  - Sinus tachycardia [Unknown]
  - Fungal skin infection [Recovering/Resolving]
  - Pulmonary oedema [Unknown]
  - Meningitis [Unknown]
  - Deep vein thrombosis [Unknown]
  - Hyperglycaemia [Unknown]
  - Systemic inflammatory response syndrome [Unknown]
  - Pain in extremity [Recovering/Resolving]
  - Disuse syndrome [Unknown]
  - Urinary incontinence [Recovering/Resolving]
  - Postrenal failure [Unknown]
  - Dehydration [Unknown]
  - Musculoskeletal stiffness [Unknown]
  - Nausea [Unknown]
  - Depressed level of consciousness [Recovering/Resolving]
  - Disseminated tuberculosis [Unknown]
  - Drug level increased [Unknown]
  - Faecal incontinence [Unknown]
  - Oedema peripheral [Unknown]
  - Blood pressure decreased [Unknown]
  - Hypoaesthesia [Unknown]
  - Urinary retention [Recovering/Resolving]
  - Acute respiratory distress syndrome [Unknown]
  - Gait disturbance [Unknown]
  - Product use issue [Unknown]
  - Interstitial lung disease [Recovering/Resolving]
  - Infection [Unknown]
  - Blood potassium decreased [Unknown]
  - Atrial fibrillation [Unknown]
  - Purpura [Recovering/Resolving]

NARRATIVE: CASE EVENT DATE: 20141226
